FAERS Safety Report 12441281 (Version 1)
Quarter: 2016Q2

REPORT INFORMATION
  Report Type: Spontaneous
  Country: US (occurrence: None)
  Receive Date: 20160606
  Receipt Date: 20160606
  Transmission Date: 20160815
  Serious: Yes (Death)
  Sender: FDA-Public Use
  Company Number: None

PATIENT
  Age: 51 Year
  Sex: Female

DRUGS (7)
  1. URSODIOL. [Suspect]
     Active Substance: URSODIOL
     Indication: NEOPLASM MALIGNANT
     Route: 048
     Dates: start: 20160502, end: 20160530
  2. CARAFATE [Concomitant]
     Active Substance: SUCRALFATE
  3. XGEVA [Concomitant]
     Active Substance: DENOSUMAB
  4. LETROZOLE. [Concomitant]
     Active Substance: LETROZOLE
  5. IBRANCE [Concomitant]
     Active Substance: PALBOCICLIB
  6. LUPRON DEPOT [Concomitant]
     Active Substance: LEUPROLIDE ACETATE
  7. MS CONTIN [Concomitant]
     Active Substance: MORPHINE SULFATE

REACTIONS (1)
  - Death [None]

NARRATIVE: CASE EVENT DATE: 20160530
